FAERS Safety Report 4280967-5 (Version None)
Quarter: 2004Q1

REPORT INFORMATION
  Report Type: 
  Country: None (occurrence: None)
  Receive Date: 20040122
  Receipt Date: 20030113
  Transmission Date: 20041129
  Serious: Yes (Life-Threatening)
  Sender: FDA-Public Use
  Company Number: 03H-163-0208018-00

PATIENT
  Age: 10 Year
  Sex: Female
  Weight: 32 kg

DRUGS (3)
  1. MIVACRON [Suspect]
     Indication: ANAESTHESIA
     Dosage: 9 MG, ONCE, INTRAVENOUS
     Route: 042
     Dates: start: 20030109, end: 20030109
  2. OXYGEN [Concomitant]
  3. ANESTHESIA [Concomitant]

REACTIONS (1)
  - ANAPHYLACTIC REACTION [None]
